FAERS Safety Report 6856109-6 (Version None)
Quarter: 2010Q3

REPORT INFORMATION
  Report Type: 
  Country: None (occurrence: None)
  Receive Date: 20100719
  Receipt Date: 20100705
  Transmission Date: 20110219
  Serious: No
  Sender: FDA-Public Use
  Company Number: PHHY2010BR44015

PATIENT
  Age: 75 Year
  Sex: Female
  Weight: 56 kg

DRUGS (2)
  1. ZELMAC [Suspect]
     Indication: DIVERTICULITIS
     Dosage: 6 MG, BID
     Route: 048
  2. ZELMAC [Suspect]
     Indication: CONSTIPATION

REACTIONS (5)
  - ABDOMINAL PAIN [None]
  - CONSTIPATION [None]
  - DIVERTICULITIS [None]
  - MEDICATION ERROR [None]
  - TREATMENT NONCOMPLIANCE [None]
